FAERS Safety Report 7687433-5 (Version None)
Quarter: 2011Q3

REPORT INFORMATION
  Report Type: 
  Country: None (occurrence: None)
  Receive Date: 20110816
  Receipt Date: 20110802
  Transmission Date: 20111222
  Serious: Yes (Hospitalization, Other)
  Sender: FDA-Public Use
  Company Number: PHHY2011AR57853

PATIENT
  Sex: Female

DRUGS (1)
  1. DIOVAN [Suspect]
     Indication: CARDIAC DISORDER
     Dosage: ONE OR ONE AND HALF TABLET DAILY
     Dates: start: 19870101

REACTIONS (8)
  - MALAISE [None]
  - WRONG TECHNIQUE IN DRUG USAGE PROCESS [None]
  - VISION BLURRED [None]
  - DIZZINESS [None]
  - ATRIOVENTRICULAR BLOCK [None]
  - HEART RATE DECREASED [None]
  - BLOOD PRESSURE INCREASED [None]
  - BLOOD PRESSURE FLUCTUATION [None]
